FAERS Safety Report 9521791 (Version 5)
Quarter: 2014Q3

REPORT INFORMATION
  Report Type: Spontaneous
  Country: ES (occurrence: ES)
  Receive Date: 20130913
  Receipt Date: 20140822
  Transmission Date: 20150326
  Serious: Yes (Hospitalization, Other)
  Sender: FDA-Public Use
  Company Number: ES-UCBSA-096973

PATIENT
  Age: 46 Year
  Sex: Male

DRUGS (5)
  1. VIMPAT [Suspect]
     Active Substance: LACOSAMIDE
     Dosage: TOTAL DAILY DOSE: 100 MG
     Route: 048
     Dates: start: 20121217, end: 20121223
  2. METAMIZOLE [Concomitant]
     Active Substance: METAMIZOLE
     Dates: start: 20121217
  3. VIMPAT [Suspect]
     Active Substance: LACOSAMIDE
     Indication: FIBROMYALGIA
     Route: 048
     Dates: start: 2011, end: 20121206
  4. LORMETACEPAM [Concomitant]
     Dosage: TOTAL DAILY DOSE: 1 MG
     Dates: start: 20121217
  5. LEVOFLOXACINE [Concomitant]
     Active Substance: LEVOFLOXACIN
     Dosage: 500 MG
     Dates: start: 20121217

REACTIONS (1)
  - Pancreatitis acute [Recovered/Resolved]

NARRATIVE: CASE EVENT DATE: 20121206
